FAERS Safety Report 6155037-1 (Version None)
Quarter: 2009Q2

REPORT INFORMATION
  Report Type: 
  Country: None (occurrence: None)
  Receive Date: 20090410
  Receipt Date: 20090330
  Transmission Date: 20091009
  Serious: Yes (Other)
  Sender: FDA-Public Use
  Company Number: 2009SP006990

PATIENT
  Age: 2 Year
  Sex: Female

DRUGS (4)
  1. DESLORATADINE [Suspect]
     Indication: EAR INFECTION
     Dates: start: 20081001, end: 20090312
  2. ORELOX [Concomitant]
  3. ADVIL [Concomitant]
  4. PARACETAMOL [Concomitant]

REACTIONS (2)
  - FATIGUE [None]
  - NEUTROPENIA [None]
